FAERS Safety Report 7581845-6 (Version None)
Quarter: 2011Q2

REPORT INFORMATION
  Report Type: 
  Country: None (occurrence: None)
  Receive Date: 20110629
  Receipt Date: 20110614
  Transmission Date: 20111010
  Serious: No
  Sender: FDA-Public Use
  Company Number: US-B.I. PHARMACEUTICALS,INC./RIDGEFIELD-2011-BP-15391BP

PATIENT
  Sex: Male

DRUGS (1)
  1. ZANTAC 75 [Suspect]
     Dosage: 300 MG
     Dates: start: 20110614

REACTIONS (2)
  - DYSPHAGIA [None]
  - PHARYNGEAL HYPOAESTHESIA [None]
